FAERS Safety Report 4377760-1 (Version None)
Quarter: 2004Q2

REPORT INFORMATION
  Report Type: 
  Country: None (occurrence: None)
  Receive Date: 20040615
  Receipt Date: 20040608
  Transmission Date: 20050107
  Serious: Yes (Hospitalization, Disabling)
  Sender: FDA-Public Use
  Company Number: US-MERCK-0406USA00862

PATIENT
  Age: 66 Year
  Sex: Male
  Weight: 87 kg

DRUGS (7)
  1. LANOXIN [Concomitant]
     Indication: ATRIAL FIBRILLATION
     Route: 048
  2. NEURONTIN [Concomitant]
     Indication: NEUROPATHY
     Route: 065
  3. METOPROLOL [Concomitant]
     Indication: ATRIAL FIBRILLATION
     Route: 048
  4. PREDNISONE [Concomitant]
     Indication: SARCOIDOSIS
     Route: 048
  5. VIOXX [Suspect]
     Indication: CHEST WALL PAIN
     Route: 048
     Dates: start: 20040525, end: 20040602
  6. VIOXX [Suspect]
     Indication: CHEST INJURY
     Route: 048
     Dates: start: 20040525, end: 20040602
  7. COUMADIN [Concomitant]
     Indication: ATRIAL FIBRILLATION
     Route: 065

REACTIONS (3)
  - CARDIAC FAILURE CONGESTIVE [None]
  - PULMONARY OEDEMA [None]
  - VENTRICULAR DYSFUNCTION [None]
